FAERS Safety Report 11780878 (Version 1)
Quarter: 2015Q4

REPORT INFORMATION
  Report Type: Spontaneous
  Country: JP (occurrence: JP)
  Receive Date: 20151126
  Receipt Date: 20151126
  Transmission Date: 20160305
  Serious: Yes (Other)
  Sender: FDA-Public Use
  Company Number: JP-ACCORD-035583

PATIENT
  Age: 70 Year
  Sex: Female

DRUGS (1)
  1. CLOPIDOGREL [Suspect]
     Active Substance: CLOPIDOGREL BISULFATE
     Indication: ANTIPLATELET THERAPY
     Dosage: A TOTAL OF SIX TABLETS TAKEN AS A LOADING DOSE WITHOUT MUCH WATER
     Route: 048

REACTIONS (2)
  - Erosive oesophagitis [Recovered/Resolved]
  - Oral administration complication [Recovered/Resolved]
